FAERS Safety Report 4978713-2 (Version None)
Quarter: 2006Q2

REPORT INFORMATION
  Report Type: 
  Country: None (occurrence: None)
  Receive Date: 20060420
  Receipt Date: 20051018
  Transmission Date: 20061013
  Serious: Yes (Hospitalization, Other)
  Sender: FDA-Public Use
  Company Number: US-MERCK-0510USA07746

PATIENT
  Age: 70 Year
  Sex: Male
  Weight: 105 kg

DRUGS (10)
  1. VIOXX [Suspect]
     Indication: ARTHRITIS
     Route: 048
     Dates: start: 20000515, end: 20020601
  2. BECLOVENT [Concomitant]
     Route: 055
  3. BECLOVENT [Concomitant]
     Route: 055
  4. DOXIDAN [Concomitant]
     Route: 048
  5. DOXIDAN [Concomitant]
     Route: 048
  6. FOLIC ACID [Concomitant]
     Route: 065
  7. ADALAT [Concomitant]
     Route: 048
  8. ZANTAC [Concomitant]
     Route: 048
  9. ATIVAN [Concomitant]
     Route: 048
  10. ATIVAN [Concomitant]
     Route: 048

REACTIONS (15)
  - CARDIOVASCULAR DISORDER [None]
  - CELLULITIS [None]
  - CEREBROVASCULAR ACCIDENT [None]
  - DEEP VEIN THROMBOSIS [None]
  - HEART INJURY [None]
  - HEPATIC TRAUMA [None]
  - HIP FRACTURE [None]
  - LIVER DISORDER [None]
  - MULTI-ORGAN DISORDER [None]
  - MYOCARDIAL INFARCTION [None]
  - PELVIC VENOUS THROMBOSIS [None]
  - PNEUMONIA [None]
  - PULMONARY EMBOLISM [None]
  - RENAL DISORDER [None]
  - RENAL INJURY [None]
